FAERS Safety Report 9315864 (Version 1)
Quarter: 2013Q2

REPORT INFORMATION
  Report Type: Spontaneous
  Country: ES (occurrence: ES)
  Receive Date: 20130530
  Receipt Date: 20130530
  Transmission Date: 20140414
  Serious: Yes (Hospitalization)
  Sender: FDA-Public Use
  Company Number: ES-009507513-1305ESP016089

PATIENT
  Age: 43 Year
  Sex: Female

DRUGS (3)
  1. VASTAT FLAS [Suspect]
     Indication: PERSONALITY DISORDER
     Dosage: 30 MG, QD
     Route: 048
     Dates: start: 2012, end: 20130319
  2. PROZAC [Concomitant]
     Dosage: 20 MG, UNK
  3. TRANXILIUM [Concomitant]
     Dosage: HARD
     Route: 048

REACTIONS (3)
  - Flatulence [Not Recovered/Not Resolved]
  - Generalised oedema [Not Recovered/Not Resolved]
  - Abdominal distension [Not Recovered/Not Resolved]
